FAERS Safety Report 7799687-5 (Version None)
Quarter: 2011Q4

REPORT INFORMATION
  Report Type: 
  Country: None (occurrence: None)
  Receive Date: 20111006
  Receipt Date: 20110930
  Transmission Date: 20120403
  Serious: Yes (Death, Life-Threatening)
  Sender: FDA-Public Use
  Company Number: UA-ELI_LILLY_AND_COMPANY-UA201109006498

PATIENT
  Sex: Male
  Weight: 75 kg

DRUGS (7)
  1. CYANOCOBALAMIN [Concomitant]
     Dosage: UNK
     Route: 030
     Dates: start: 20110907, end: 20110907
  2. ONDANSETRON [Concomitant]
     Dosage: UNK
     Route: 048
     Dates: start: 20110912, end: 20110912
  3. ONDANSETRON [Concomitant]
     Indication: VOMITING
     Dosage: UNK
     Route: 042
     Dates: start: 20110908, end: 20110908
  4. PEMETREXED [Suspect]
     Indication: NON-SMALL CELL LUNG CANCER
     Dosage: 975 MG, UNKNOWN
     Route: 042
     Dates: start: 20110908
  5. FOLIC ACID [Concomitant]
     Indication: PREMEDICATION
     Dosage: UNK
     Route: 048
     Dates: start: 20110903
  6. DEXAMETHASONE [Concomitant]
     Dosage: UNK
     Route: 030
     Dates: start: 20110907, end: 20110909
  7. DICLOFENAC [Concomitant]
     Indication: CHEST PAIN
     Dosage: UNK
     Route: 048
     Dates: start: 20110910

REACTIONS (6)
  - FATIGUE [None]
  - ASPARTATE AMINOTRANSFERASE INCREASED [None]
  - DEATH [None]
  - ALANINE AMINOTRANSFERASE INCREASED [None]
  - HYPONATRAEMIA [None]
  - HYPOCHLORAEMIA [None]
